FAERS Safety Report 7620855-7 (Version None)
Quarter: 2011Q3

REPORT INFORMATION
  Report Type: 
  Country: None (occurrence: None)
  Receive Date: 20110719
  Receipt Date: 20110715
  Transmission Date: 20111222
  Serious: Yes (Death, Life-Threatening)
  Sender: FDA-Public Use
  Company Number: JP-SANOFI-AVENTIS-A01200815764

PATIENT
  Age: 73 Year
  Sex: Male

DRUGS (6)
  1. AVASTIN [Suspect]
     Indication: COLON CANCER METASTATIC
     Dosage: UNIT DOSE: 5 MG/KG
     Route: 041
     Dates: start: 20080723, end: 20080903
  2. KYTRIL [Concomitant]
     Dates: start: 20080723, end: 20080904
  3. OXALIPLATIN [Suspect]
     Indication: COLON CANCER METASTATIC
     Dosage: UNIT DOSE: 126.65 MG
     Route: 041
     Dates: start: 20080723, end: 20080903
  4. LEUCOVORIN CALCIUM [Suspect]
     Indication: COLON CANCER METASTATIC
     Route: 041
     Dates: start: 20080723, end: 20080903
  5. FLUOROURACIL [Suspect]
     Indication: COLON CANCER METASTATIC
     Dosage: UNIT DOSE: 596 MG
     Route: 042
     Dates: start: 20080723, end: 20080904
  6. DEXAMETHASONE [Concomitant]
     Dates: start: 20080723, end: 20080904

REACTIONS (4)
  - NEUTROPHIL COUNT DECREASED [None]
  - ACUTE RESPIRATORY DISTRESS SYNDROME [None]
  - COLON CANCER METASTATIC [None]
  - HAEMOPTYSIS [None]
